FAERS Safety Report 11884004 (Version 1)
Quarter: 2016Q1

REPORT INFORMATION
  Report Type: Spontaneous
  Country: US (occurrence: US)
  Receive Date: 20160102
  Receipt Date: 20160102
  Transmission Date: 20160526
  Serious: No
  Sender: FDA-Public Use
  Company Number: US-AMGEN-USASP2015140028

PATIENT
  Age: 34 Year
  Sex: Female

DRUGS (2)
  1. ENBREL [Suspect]
     Active Substance: ETANERCEPT
     Indication: RHEUMATOID ARTHRITIS
     Dosage: 50 MG, QWK
     Route: 058
     Dates: start: 20130318
  2. NEOMYCIN AND POLYMYXIN B SULFATES AND HYDROCO [Concomitant]
     Dosage: UNK

REACTIONS (1)
  - Ear infection [Not Recovered/Not Resolved]

NARRATIVE: CASE EVENT DATE: 2012
